FAERS Safety Report 12439795 (Version 1)
Quarter: 2016Q2

REPORT INFORMATION
  Report Type: Spontaneous
  Country: US (occurrence: US)
  Receive Date: 20160606
  Receipt Date: 20160606
  Transmission Date: 20160815
  Serious: Yes (Death, Other)
  Sender: FDA-Public Use
  Company Number: US-INDIVIOR LIMITED-INDV-091094-2016

PATIENT
  Sex: Male

DRUGS (1)
  1. SUBOXONE [Suspect]
     Active Substance: BUPRENORPHINE HYDROCHLORIDE\NALOXONE HYDROCHLORIDE
     Indication: PRODUCT USED FOR UNKNOWN INDICATION
     Dosage: 2 FILMS, DAILY
     Route: 060
     Dates: end: 20160524

REACTIONS (7)
  - Absent bowel movement [Recovered/Resolved]
  - Death [Fatal]
  - Respiratory rate decreased [Unknown]
  - Renal impairment [Unknown]
  - Urinary retention [Recovered/Resolved]
  - Mental disorder [Unknown]
  - Breath sounds abnormal [Recovered/Resolved]

NARRATIVE: CASE EVENT DATE: 20160524
